FAERS Safety Report 18550260 (Version 1)
Quarter: 2020Q4

REPORT INFORMATION
  Report Type: Spontaneous
  Country: DK (occurrence: DK)
  Receive Date: 20201126
  Receipt Date: 20201126
  Transmission Date: 20210114
  Serious: Yes (Life-Threatening, Hospitalization)
  Sender: FDA-Public Use
  Company Number: NVSC2020DK312477

PATIENT
  Age: 62 Year
  Sex: Male

DRUGS (7)
  1. PANTOPRAZOL ACTAVIS [Concomitant]
     Active Substance: PANTOPRAZOLE SODIUM
     Indication: GASTROOESOPHAGEAL REFLUX DISEASE
     Dosage: 40 MG, QD
     Route: 048
     Dates: start: 20200212
  2. CITALOPRAM [Concomitant]
     Active Substance: CITALOPRAM HYDROBROMIDE
     Indication: DEPRESSION
     Dosage: 30 MG, QD
     Route: 048
  3. FUROSEMID [Concomitant]
     Active Substance: FUROSEMIDE
     Indication: DIURETIC THERAPY
     Dosage: 40 MG, QD
     Route: 048
     Dates: start: 20191021
  4. METOPROLOL TARTRATE. [Concomitant]
     Active Substance: METOPROLOL TARTRATE
     Indication: CARDIAC DISORDER
     Dosage: 50 MG, QD
     Route: 048
     Dates: start: 20191022
  5. ATORVASTATIN [Concomitant]
     Active Substance: ATORVASTATIN
     Indication: HYPERCHOLESTEROLAEMIA
     Dosage: 40 MG, QD
     Route: 048
     Dates: start: 20200615
  6. HJERDYL [Suspect]
     Active Substance: ASPIRIN
     Indication: ANTICOAGULANT THERAPY
     Dosage: 75 MG, QD
     Route: 048
     Dates: start: 20191011, end: 20201101
  7. MAREVAN [Suspect]
     Active Substance: WARFARIN SODIUM
     Indication: ANTICOAGULANT THERAPY
     Dosage: 32.5 MG, QW
     Route: 048
     Dates: start: 20191025, end: 20201101

REACTIONS (8)
  - Faeces discoloured [Unknown]
  - Pallor [Unknown]
  - Abdominal discomfort [Unknown]
  - Cold sweat [Unknown]
  - Gastric ulcer [Unknown]
  - Dizziness [Unknown]
  - Haematemesis [Unknown]
  - Nausea [Unknown]

NARRATIVE: CASE EVENT DATE: 20201101
